FAERS Safety Report 4580845-8 (Version None)
Quarter: 2005Q1

REPORT INFORMATION
  Report Type: 
  Country: None (occurrence: None)
  Receive Date: 20050214
  Receipt Date: 20040610
  Transmission Date: 20050727
  Serious: No
  Sender: FDA-Public Use
  Company Number: US-GLAXOSMITHKLINE-A0514279A

PATIENT
  Age: 12 Year
  Sex: Female

DRUGS (3)
  1. LAMICTAL [Suspect]
     Indication: DRUG USE FOR UNKNOWN INDICATION
     Dosage: 100MG TWICE PER DAY
     Route: 048
  2. WELLBUTRIN SR [Concomitant]
     Dosage: 300MG PER DAY
     Route: 048
  3. TRAZODONE [Concomitant]
     Dosage: 200MG AT NIGHT
     Route: 048

REACTIONS (3)
  - MALAISE [None]
  - TREMOR [None]
  - VOMITING [None]
